FAERS Safety Report 9212757 (Version 1)
Quarter: 2013Q2

REPORT INFORMATION
  Report Type: Other
  Country: US (occurrence: US)
  Receive Date: 20130405
  Receipt Date: 20130405
  Transmission Date: 20140414
  Serious: Yes (Death)
  Sender: FDA-Public Use
  Company Number: US-SHIRE-ALL1-2013-02106

PATIENT
  Age: 76 Year
  Sex: Female

DRUGS (1)
  1. FOSRENOL [Suspect]
     Indication: RENAL FAILURE CHRONIC
     Dosage: 500 MG, 3X/DAY:TID (500 MG TABLET WITH EACH MEAL)
     Route: 048
     Dates: start: 201107

REACTIONS (1)
  - Death [Fatal]
